FAERS Safety Report 7365181-9 (Version None)
Quarter: 2011Q1

REPORT INFORMATION
  Report Type: 
  Country: None (occurrence: None)
  Receive Date: 20110321
  Receipt Date: 20110314
  Transmission Date: 20110831
  Serious: Yes (Life-Threatening, Hospitalization)
  Sender: FDA-Public Use
  Company Number: PHHY2010US86412

PATIENT
  Sex: Female

DRUGS (2)
  1. TOBI [Suspect]
     Indication: BRONCHITIS CHRONIC
  2. TOBI [Suspect]
     Indication: OBSTRUCTIVE AIRWAYS DISORDER
     Dosage: 300 MG, BID
     Dates: start: 20101119

REACTIONS (1)
  - RESPIRATORY ARREST [None]
